FAERS Safety Report 8770473 (Version 1)
Quarter: 2012Q4

REPORT INFORMATION
  Report Type: 
  Country: JP (occurrence: US)
  Receive Date: 20120906
  Receipt Date: 20120906
  Transmission Date: 20130627
  Serious: Yes (Other)
  Sender: FDA-Public Use
  Company Number: US-JNJFOC-20100704948

PATIENT
  Sex: Female
  Weight: 72.58 kg

DRUGS (6)
  1. LEVAQUIN [Suspect]
     Indication: SINUS DISORDER
     Dosage: in AM for 10 days
     Route: 048
  2. LEVAQUIN [Suspect]
     Indication: UPPER RESPIRATORY TRACT INFECTION
     Dosage: in AM for 10 days
     Route: 048
  3. ADVAIR DISKUS [Suspect]
     Indication: SINUS DISORDER
     Dosage: 250-50 mcg/dose misc 1 inhalation twice a day
     Route: 048
  4. ADVAIR DISKUS [Suspect]
     Indication: UPPER RESPIRATORY TRACT INFECTION
     Dosage: 250-50 mcg/dose misc 1 inhalation twice a day
     Route: 048
  5. NASONEX [Suspect]
     Indication: PRODUCT USED FOR UNKNOWN INDICATION
     Route: 045
  6. DESOXIMETASONE [Suspect]
     Indication: PRODUCT USED FOR UNKNOWN INDICATION
     Route: 065

REACTIONS (5)
  - Tendon rupture [Unknown]
  - Tenosynovitis [Unknown]
  - Tendon rupture [Unknown]
  - Tendon disorder [Unknown]
  - Tendon disorder [Unknown]
